FAERS Safety Report 24422628 (Version 1)
Quarter: 2024Q4

REPORT INFORMATION
  Report Type: Spontaneous
  Country: US (occurrence: None)
  Receive Date: 20241009
  Receipt Date: 20241009
  Transmission Date: 20250115
  Serious: No
  Sender: Public
  Company Number: None

PATIENT
  Age: 76 Year
  Sex: Male
  Weight: 93 kg

DRUGS (1)
  1. WARFARIN SODIUM [Suspect]
     Active Substance: WARFARIN SODIUM
     Indication: Pulmonary embolism
     Dates: start: 20210816

REACTIONS (9)
  - Gastrointestinal haemorrhage [None]
  - Iron deficiency anaemia [None]
  - Diverticulitis [None]
  - Haemorrhoids [None]
  - Large intestine polyp [None]
  - Diverticulum intestinal [None]
  - Barrett^s oesophagus [None]
  - Oesophagitis [None]
  - Gastritis [None]

NARRATIVE: CASE EVENT DATE: 20240610
